FAERS Safety Report 4783373-X (Version None)
Quarter: 2005Q3

REPORT INFORMATION
  Report Type: 
  Country: None (occurrence: None)
  Receive Date: 20050928
  Receipt Date: 20050913
  Transmission Date: 20060218
  Serious: Yes (Death)
  Sender: FDA-Public Use
  Company Number: 1901

PATIENT
  Age: 33 Year
  Sex: Female

DRUGS (5)
  1. AVINZA [Suspect]
     Dosage: 30 MG QD PO
     Route: 048
     Dates: start: 20050824, end: 20050906
  2. AVINZA [Suspect]
     Dosage: 30 MG BID PO
     Route: 048
     Dates: start: 20050907, end: 20050909
  3. CYCLOBENZAPRINE HCL [Concomitant]
  4. DIVALPROEX SODIUM [Concomitant]
  5. ESCITALOPRAM OXALATE [Concomitant]

REACTIONS (5)
  - ASPIRATION [None]
  - CONVULSION [None]
  - LOSS OF CONSCIOUSNESS [None]
  - OVERDOSE [None]
  - RESPIRATORY DEPRESSION [None]
